FAERS Safety Report 10223960 (Version 2)
Quarter: 2014Q3

REPORT INFORMATION
  Report Type: Spontaneous
  Country: US (occurrence: US)
  Receive Date: 20140609
  Receipt Date: 20140701
  Transmission Date: 20150326
  Serious: Yes (Life-Threatening, Hospitalization)
  Sender: FDA-Public Use
  Company Number: 2014SP001743

PATIENT
  Age: 19 Year
  Sex: Male
  Weight: 85 kg

DRUGS (2)
  1. LATUDA [Suspect]
     Active Substance: LURASIDONE HYDROCHLORIDE
     Indication: BIPOLAR I DISORDER
     Route: 048
     Dates: start: 20140514, end: 20140516
  2. CLOZAPINE. [Concomitant]
     Active Substance: CLOZAPINE

REACTIONS (5)
  - Mania [Not Recovered/Not Resolved]
  - Self injurious behaviour [Not Recovered/Not Resolved]
  - Vomiting [Unknown]
  - Agitation [Unknown]
  - Nausea [Unknown]

NARRATIVE: CASE EVENT DATE: 20140516
